FAERS Safety Report 5835253-6 (Version None)
Quarter: 2008Q3

REPORT INFORMATION
  Report Type: 
  Country: None (occurrence: None)
  Receive Date: 20080806
  Receipt Date: 20080730
  Transmission Date: 20090109
  Serious: Yes (Other)
  Sender: FDA-Public Use
  Company Number: FR-BAYER-200823504GPV

PATIENT
  Age: 41 Year
  Sex: Male
  Weight: 73 kg

DRUGS (10)
  1. IZILOX [Suspect]
     Indication: TUBERCULOSIS
     Route: 048
     Dates: start: 20070601, end: 20080320
  2. IZILOX [Suspect]
     Route: 048
     Dates: start: 20080328, end: 20080701
  3. ANSATIPIN [Suspect]
     Indication: TUBERCULOSIS
     Dosage: TOTAL DAILY DOSE: 225 MG  UNIT DOSE: 225 MG
     Route: 048
     Dates: start: 20080328
  4. ANSATIPIN [Suspect]
     Dosage: TOTAL DAILY DOSE: 225 MG  UNIT DOSE: 225 MG
     Route: 048
     Dates: start: 20070810, end: 20080320
  5. KALETRA [Suspect]
     Indication: DRUG USE FOR UNKNOWN INDICATION
     Route: 048
     Dates: start: 20070911
  6. VIREAD [Suspect]
     Indication: DRUG USE FOR UNKNOWN INDICATION
     Route: 048
     Dates: start: 20070911
  7. INTERFERON ALFA [Concomitant]
     Indication: LEUKAEMIA
     Route: 065
     Dates: start: 19940101
  8. COMBIVIR [Concomitant]
     Indication: HIV INFECTION
     Route: 065
     Dates: start: 20070911
  9. ETHAMBUTOL HCL [Concomitant]
     Indication: TUBERCULOSIS
     Route: 065
     Dates: start: 20080328
  10. ETHAMBUTOL HCL [Concomitant]
     Route: 065
     Dates: start: 20070601, end: 20080320

REACTIONS (2)
  - ARTHRALGIA [None]
  - SYNOVITIS [None]
